FAERS Safety Report 5798707-7 (Version None)
Quarter: 2008Q2

REPORT INFORMATION
  Report Type: 
  Country: None (occurrence: None)
  Receive Date: 20080630
  Receipt Date: 20080612
  Transmission Date: 20081010
  Serious: Yes (Hospitalization, Other)
  Sender: FDA-Public Use
  Company Number: MK-6035080

PATIENT
  Age: 58 Year
  Sex: Male

DRUGS (7)
  1. SIMVASTATIN (SIMVASTATIN) DOSE, FORM, ROUTE AND FREQUENCY UNKNOWN: ORA [Suspect]
     Indication: HYPERCHOLESTEROLAEMIA
     Route: 048
  2. BISOPROLOL FUMARATE [Concomitant]
  3. RAMIPRIL [Concomitant]
  4. SPIRONOLACTONE [Concomitant]
  5. PRAVASTATIN [Suspect]
     Indication: DRUG USE FOR UNKNOWN INDICATION
  6. WARFARIN (WARFARIN) DOSE, FORM, ROUTE AND FREQUENCY UNKNOWN; UNKNOWN [Suspect]
     Indication: MITRAL VALVE REPLACEMENT
  7. AMLODIPINE BESYLATE [Suspect]
     Indication: DRUG USE FOR UNKNOWN INDICATION

REACTIONS (5)
  - DRUG INTERACTION [None]
  - GUILLAIN-BARRE SYNDROME [None]
  - INTERNATIONAL NORMALISED RATIO INCREASED [None]
  - RECTAL HAEMORRHAGE [None]
  - RENAL FAILURE [None]
